FAERS Safety Report 8297583-0 (Version None)
Quarter: 2012Q2

REPORT INFORMATION
  Report Type: 
  Country: None (occurrence: None)
  Receive Date: 20120419
  Receipt Date: 20120412
  Transmission Date: 20120825
  Serious: Yes (Other)
  Sender: FDA-Public Use
  Company Number: US-UCBSA-055226

PATIENT
  Age: 45 Year
  Sex: Female

DRUGS (10)
  1. CALCIUM CARBONATE [Concomitant]
     Dosage: DAILY DOSE:500MG
  2. RESTASIS [Concomitant]
     Dosage: TWICE A DAYS
  3. CENTRUM [Concomitant]
     Dosage: DAILY
  4. CIMZIA [Suspect]
     Indication: RHEUMATOID ARTHRITIS
     Dosage: DOSE:400MG
     Dates: start: 20120330
  5. PRILOSEC [Concomitant]
     Dosage: DAILY DOSE:20MG
  6. NAPROXEN [Concomitant]
  7. PREDNISONE TAB [Concomitant]
     Dosage: DOSE:5MG
  8. SYSTANE EYE DROPS [Concomitant]
  9. IRON [Concomitant]
     Dosage: DOSE:1000MG
     Route: 048
  10. METHOTREXATE SODIUM [Concomitant]
     Dosage: TAKES 6 PILLS

REACTIONS (6)
  - HEADACHE [None]
  - CHEST PAIN [None]
  - OEDEMA PERIPHERAL [None]
  - URTICARIA [None]
  - SKIN DISCOLOURATION [None]
  - PYREXIA [None]
